FAERS Safety Report 23805238 (Version 2)
Quarter: 2024Q2

REPORT INFORMATION
  Report Type: Spontaneous
  Country: DE (occurrence: DE)
  Receive Date: 20240502
  Receipt Date: 20240513
  Transmission Date: 20240715
  Serious: Yes (Hospitalization)
  Sender: FDA-Public Use
  Company Number: DE-NOVOPROD-1210177

PATIENT
  Age: 63 Year
  Sex: Female
  Weight: 75.9 kg

DRUGS (2)
  1. WEGOVY [Suspect]
     Active Substance: SEMAGLUTIDE
     Dosage: 2.4MG
  2. WEGOVY [Suspect]
     Active Substance: SEMAGLUTIDE
     Indication: Medical diet
     Dosage: UNK
     Dates: start: 20240325

REACTIONS (5)
  - Shoulder fracture [Recovered/Resolved]
  - Loss of consciousness [Recovered/Resolved]
  - Increased appetite [Recovered/Resolved]
  - Abdominal discomfort [Recovered/Resolved]
  - Dizziness [Recovered/Resolved]

NARRATIVE: CASE EVENT DATE: 20240326
